FAERS Safety Report 10233340 (Version 1)
Quarter: 2014Q2

REPORT INFORMATION
  Report Type: Spontaneous
  Country: US (occurrence: US)
  Receive Date: 20140612
  Receipt Date: 20140612
  Transmission Date: 20141212
  Serious: Yes (Other)
  Sender: FDA-Public Use
  Company Number: US-PFIZER INC-2014157403

PATIENT
  Age: 76 Year
  Sex: Female
  Weight: 59 kg

DRUGS (1)
  1. LIPITOR [Suspect]
     Dosage: UNK, 1X/DAY
     Route: 048

REACTIONS (12)
  - Back disorder [Unknown]
  - Gait disturbance [Unknown]
  - Muscular weakness [Unknown]
  - Muscle disorder [Unknown]
  - Asthenia [Unknown]
  - Vision blurred [Unknown]
  - Eye disorder [Unknown]
  - Nasopharyngitis [Unknown]
  - Dysstasia [Unknown]
  - Fall [Unknown]
  - Back pain [Unknown]
  - Pain [Unknown]
